FAERS Safety Report 6504745-9 (Version None)
Quarter: 2009Q4

REPORT INFORMATION
  Report Type: 
  Country: None (occurrence: None)
  Receive Date: 20091218
  Receipt Date: 20091208
  Transmission Date: 20100525
  Serious: Yes (Hospitalization, Other)
  Sender: FDA-Public Use
  Company Number: BR-ABBOTT-09P-020-0613266-00

PATIENT
  Sex: Female
  Weight: 90 kg

DRUGS (16)
  1. HUMIRA [Suspect]
     Indication: RHEUMATOID ARTHRITIS
     Route: 058
     Dates: start: 20090101, end: 20090707
  2. HUMIRA [Suspect]
     Route: 058
  3. AMARYL [Concomitant]
     Indication: DIABETES MELLITUS
     Dosage: 2 MILLIGRAMS 1.5 PER DAY
     Route: 048
     Dates: start: 20050101
  4. LOSARTAN [Concomitant]
     Indication: HYPERTENSION
     Route: 048
     Dates: start: 20030101
  5. GLIFAGE [Concomitant]
     Indication: DIABETES MELLITUS
     Route: 048
     Dates: start: 20050101
  6. LEFLUNOMIDE [Concomitant]
     Indication: RHEUMATOID ARTHRITIS
     Route: 048
     Dates: start: 20050101
  7. TEGRETOL [Concomitant]
     Indication: DIABETIC NEUROPATHY
     Route: 048
     Dates: start: 20070101
  8. AAS [Concomitant]
     Indication: ANTICOAGULANT THERAPY
     Route: 048
     Dates: start: 20040101
  9. BIOMADI [Concomitant]
     Indication: DIABETES MELLITUS
     Route: 048
     Dates: start: 20060101
  10. BIOMADI [Concomitant]
     Indication: OBESITY
  11. METICORTEN [Concomitant]
     Indication: RHEUMATOID ARTHRITIS
     Route: 048
     Dates: start: 20050101
  12. LIPITOR [Concomitant]
     Indication: BLOOD CHOLESTEROL INCREASED
     Route: 048
     Dates: start: 20080101
  13. HYDROCHLOROTHIAZIDE [Concomitant]
     Indication: FLUID RETENTION
     Route: 048
     Dates: start: 20040101
  14. HYDROCHLOROTHIAZIDE [Concomitant]
     Indication: PROPHYLAXIS
  15. AMYTRIL [Concomitant]
     Indication: DEPRESSION
     Route: 048
     Dates: start: 20040101
  16. AMYTRIL [Concomitant]
     Indication: ANALGESIC THERAPY

REACTIONS (1)
  - BRAIN NEOPLASM MALIGNANT [None]
